FAERS Safety Report 4841945-8 (Version None)
Quarter: 2005Q4

REPORT INFORMATION
  Report Type: 
  Country: None (occurrence: None)
  Receive Date: 20051129
  Receipt Date: 20051116
  Transmission Date: 20060501
  Serious: Yes (Other)
  Sender: FDA-Public Use
  Company Number: 2005157336

PATIENT
  Age: 49 Year
  Sex: Female
  Weight: 58.0604 kg

DRUGS (1)
  1. COOL MINT LISTERINE (MENTHOL, METHYL SALICYLATE, EUCALYPTOL, THYMOL) [Suspect]
     Indication: DENTAL DISORDER PROPHYLAXIS
     Dosage: 25 CC ONCE DAILY, ORAL
     Route: 048
     Dates: start: 20051105, end: 20051112

REACTIONS (3)
  - DRUG INEFFECTIVE [None]
  - GLOSSITIS [None]
  - SWELLING FACE [None]
